FAERS Safety Report 21628675 (Version 1)
Quarter: 2022Q4

REPORT INFORMATION
  Report Type: Spontaneous
  Country: US (occurrence: None)
  Receive Date: 20221122
  Receipt Date: 20221122
  Transmission Date: 20230113
  Serious: No
  Sender: FDA-Public Use
  Company Number: None

PATIENT
  Age: 64 Year
  Sex: Female
  Weight: 75.8 kg

DRUGS (1)
  1. EVUSHELD [Suspect]
     Active Substance: CILGAVIMAB\TIXAGEVIMAB

REACTIONS (8)
  - Chills [None]
  - Fatigue [None]
  - Dizziness [None]
  - Hyperhidrosis [None]
  - Nausea [None]
  - Urticaria [None]
  - Diarrhoea [None]
  - Orthostatic intolerance [None]

NARRATIVE: CASE EVENT DATE: 20221116
